FAERS Safety Report 11150516 (Version 1)
Quarter: 2015Q2

REPORT INFORMATION
  Report Type: Report from Study
  Country: MX (occurrence: MX)
  Receive Date: 20150601
  Receipt Date: 20150601
  Transmission Date: 20150821
  Serious: Yes (Hospitalization)
  Sender: FDA-Public Use
  Company Number: MX-ORION CORPORATION ORION PHARMA-ENTC2015-0270

PATIENT
  Sex: Male

DRUGS (3)
  1. STALEVO [Suspect]
     Active Substance: CARBIDOPA\ENTACAPONE\LEVODOPA
     Indication: PARKINSON^S DISEASE
     Dosage: STRENGTH: 200/50/200 MG
     Route: 065
  2. VALIUM [Concomitant]
     Active Substance: DIAZEPAM
     Dosage: STRENGTH: 1 MG
     Route: 065
  3. AZILECT [Concomitant]
     Active Substance: RASAGILINE MESYLATE
     Dosage: STRENGTH: 1 MG
     Route: 065

REACTIONS (2)
  - Chikungunya virus infection [Not Recovered/Not Resolved]
  - Diarrhoea [Not Recovered/Not Resolved]
